FAERS Safety Report 22262496 (Version 1)
Quarter: 2023Q2

REPORT INFORMATION
  Report Type: Spontaneous
  Country: CA (occurrence: CA)
  Receive Date: 20230428
  Receipt Date: 20230428
  Transmission Date: 20230722
  Serious: Yes (Life-Threatening)
  Sender: FDA-Public Use
  Company Number: CA-NOVOPROD-1055293

PATIENT
  Sex: Female

DRUGS (1)
  1. TRESIBA [Suspect]
     Active Substance: INSULIN DEGLUDEC
     Indication: Product used for unknown indication
     Dosage: UNK

REACTIONS (2)
  - Coma [Unknown]
  - Product measured potency issue [Unknown]
